FAERS Safety Report 21239658 (Version 2)
Quarter: 2022Q3

REPORT INFORMATION
  Report Type: Spontaneous
  Country: BR (occurrence: BR)
  Receive Date: 20220822
  Receipt Date: 20220912
  Transmission Date: 20221026
  Serious: Yes (Death, Life-Threatening, Hospitalization, Other)
  Sender: FDA-Public Use
  Company Number: BR-BRACCO-2022BR03236

PATIENT
  Age: 76 Year
  Sex: Female

DRUGS (2)
  1. IOPAMIRON [Suspect]
     Active Substance: IOPAMIDOL
     Indication: Computerised tomogram
     Dosage: 80 ML, SINGLE
     Route: 042
     Dates: start: 20220804, end: 20220804
  2. IOPAMIRON [Suspect]
     Active Substance: IOPAMIDOL
     Indication: Computerised tomogram
     Dosage: 20 ML, SINGLE
     Route: 048
     Dates: start: 20220804, end: 20220804

REACTIONS (8)
  - Off label use [Unknown]
  - Cardio-respiratory arrest [Fatal]
  - Malaise [Unknown]
  - Cyanosis [Unknown]
  - Pallor [Unknown]
  - Peripheral coldness [Unknown]
  - Cold sweat [Unknown]
  - Respiratory distress [Unknown]

NARRATIVE: CASE EVENT DATE: 20220804
